FAERS Safety Report 11389879 (Version 1)
Quarter: 2015Q3

REPORT INFORMATION
  Report Type: Spontaneous
  Country: US (occurrence: US)
  Receive Date: 20150818
  Receipt Date: 20150818
  Transmission Date: 20151125
  Serious: No
  Sender: FDA-Public Use
  Company Number: US-ASTRAZENECA-2015SE76982

PATIENT
  Sex: Female

DRUGS (1)
  1. MOVANTIK [Suspect]
     Active Substance: NALOXEGOL OXALATE
     Dosage: 3 25 MG PILLS YESTERDAY, 2 PILLS TODAY
     Route: 048
     Dates: start: 20150804

REACTIONS (2)
  - Infrequent bowel movements [Not Recovered/Not Resolved]
  - Intentional product misuse [Unknown]
